FAERS Safety Report 6712885-4 (Version None)
Quarter: 2010Q2

REPORT INFORMATION
  Report Type: 
  Country: None (occurrence: None)
  Receive Date: 20100505
  Receipt Date: 20100505
  Transmission Date: 20101027
  Serious: No
  Sender: FDA-Public Use
  Company Number: None

PATIENT
  Age: 7 Year
  Sex: Female
  Weight: 19.9583 kg

DRUGS (2)
  1. CHILDREN'S ZYRTEC ALLERGY [Suspect]
     Indication: ASTHMA
     Dosage: 5 MG QD PO
     Route: 048
     Dates: start: 20080101, end: 20100504
  2. CHILDREN'S ZYRTEC ALLERGY [Suspect]
     Indication: SEASONAL ALLERGY
     Dosage: 5 MG QD PO
     Route: 048
     Dates: start: 20080101, end: 20100504

REACTIONS (2)
  - OROPHARYNGEAL PAIN [None]
  - PRODUCT QUALITY ISSUE [None]
